FAERS Safety Report 6972513-X (Version None)
Quarter: 2010Q3

REPORT INFORMATION
  Report Type: 
  Country: None (occurrence: None)
  Receive Date: 20100824
  Receipt Date: 20100427
  Transmission Date: 20110219
  Serious: No
  Sender: FDA-Public Use
  Company Number: 307912

PATIENT
  Age: 39 Year
  Sex: Female

DRUGS (2)
  1. VICTOZA [Suspect]
     Indication: TYPE 2 DIABETES MELLITUS
     Dosage: 0.6 U, QD, SUBCUTANEOUS ; 1.2 QD, SUBCUTANEOUS
     Route: 058
     Dates: start: 20100301, end: 20100413
  2. VICTOZA [Suspect]
     Indication: TYPE 2 DIABETES MELLITUS
     Dosage: 0.6 U, QD, SUBCUTANEOUS ; 1.2 QD, SUBCUTANEOUS
     Route: 058
     Dates: start: 20100413

REACTIONS (3)
  - INCORRECT PRODUCT STORAGE [None]
  - INJECTION SITE ERYTHEMA [None]
  - INJECTION SITE HAEMORRHAGE [None]
